FAERS Safety Report 6829091-5 (Version None)
Quarter: 2010Q3

REPORT INFORMATION
  Report Type: 
  Country: None (occurrence: None)
  Receive Date: 20100709
  Receipt Date: 20070228
  Transmission Date: 20110219
  Serious: No
  Sender: FDA-Public Use
  Company Number: US-PFIZER INC-2007017501

PATIENT
  Sex: Female
  Weight: 57.15 kg

DRUGS (8)
  1. CHANTIX [Suspect]
     Indication: SMOKING CESSATION THERAPY
     Route: 048
     Dates: start: 20070122
  2. NEXIUM [Concomitant]
     Indication: GASTRIC DISORDER
  3. XANAX [Concomitant]
     Indication: INSOMNIA
  4. TRILEPTAL [Concomitant]
  5. SOMA [Concomitant]
  6. ALL OTHER THERAPEUTIC PRODUCTS [Concomitant]
  7. PREMARIN [Concomitant]
  8. MONTELUKAST SODIUM [Concomitant]

REACTIONS (4)
  - DRUG WITHDRAWAL SYNDROME [None]
  - FEELING JITTERY [None]
  - NAUSEA [None]
  - NERVOUSNESS [None]
